FAERS Safety Report 5256878-5 (Version None)
Quarter: 2007Q1

REPORT INFORMATION
  Report Type: 
  Country: None (occurrence: None)
  Receive Date: 20070306
  Receipt Date: 20070226
  Transmission Date: 20070707
  Serious: Yes (Other)
  Sender: FDA-Public Use
  Company Number: US-ELI_LILLY_AND_COMPANY-US200702005249

PATIENT
  Age: 82 Year
  Sex: Female

DRUGS (3)
  1. FORTEO [Suspect]
     Indication: OSTEOPOROSIS
     Dates: start: 20020226, end: 20040201
  2. BONIVA [Concomitant]
     Indication: OSTEOPOROSIS
     Route: 042
  3. MIACALCIN [Concomitant]
     Indication: OSTEOPOROSIS

REACTIONS (11)
  - ADVERSE DRUG REACTION [None]
  - BONE DENSITY DECREASED [None]
  - CIRCULATORY COLLAPSE [None]
  - COLD SWEAT [None]
  - DRUG INEFFECTIVE [None]
  - FEELING ABNORMAL [None]
  - FEELING HOT [None]
  - LOSS OF CONSCIOUSNESS [None]
  - LUMBAR VERTEBRAL FRACTURE [None]
  - MALAISE [None]
  - MYDRIASIS [None]
